FAERS Safety Report 20667399 (Version 3)
Quarter: 2022Q3

REPORT INFORMATION
  Report Type: Report from Study
  Country: US (occurrence: US)
  Receive Date: 20220404
  Receipt Date: 20220912
  Transmission Date: 20221027
  Serious: Yes (Other)
  Sender: FDA-Public Use
  Company Number: US-ABBVIE-22K-163-4339442-00

PATIENT
  Age: 82 Year
  Sex: Male

DRUGS (4)
  1. IMBRUVICA [Suspect]
     Active Substance: IBRUTINIB
     Indication: Waldenstrom^s macroglobulinaemia
     Route: 048
  2. MODERNA COVID-19 VACCINE [Concomitant]
     Active Substance: ELASOMERAN
     Indication: COVID-19 immunisation
     Dosage: FIRST DOSE
  3. MODERNA COVID-19 VACCINE [Concomitant]
     Active Substance: ELASOMERAN
     Dosage: SECOND DOSE
  4. MODERNA COVID-19 VACCINE [Concomitant]
     Active Substance: ELASOMERAN
     Dosage: BOOSTER DOSE

REACTIONS (29)
  - Heart valve replacement [Unknown]
  - Neoplasm malignant [Unknown]
  - Dementia [Unknown]
  - Limb injury [Unknown]
  - Dyslexia [Unknown]
  - Oral pain [Unknown]
  - Skin wrinkling [Unknown]
  - Skin discolouration [Unknown]
  - Musculoskeletal disorder [Unknown]
  - Nail discolouration [Unknown]
  - Nail disorder [Unknown]
  - Skin odour abnormal [Unknown]
  - Skin discolouration [Unknown]
  - Skin injury [Unknown]
  - Peripheral swelling [Unknown]
  - Skin haemorrhage [Unknown]
  - Joint range of motion decreased [Unknown]
  - Skin laceration [Unknown]
  - Skin disorder [Unknown]
  - Onychomadesis [Unknown]
  - Pain of skin [Unknown]
  - Nail infection [Recovered/Resolved]
  - Contusion [Not Recovered/Not Resolved]
  - Localised infection [Unknown]
  - Tooth infection [Unknown]
  - Fatigue [Unknown]
  - Pain in extremity [Unknown]
  - Contusion [Unknown]
  - Haemorrhage [Unknown]

NARRATIVE: CASE EVENT DATE: 20220301
